FAERS Safety Report 21997002 (Version 1)
Quarter: 2023Q1

REPORT INFORMATION
  Report Type: Report from Study
  Country: IT (occurrence: IT)
  Receive Date: 20230215
  Receipt Date: 20230215
  Transmission Date: 20230418
  Serious: Yes (Other)
  Sender: FDA-Public Use
  Company Number: IT-CELLTRION INC.-2023IT002965

PATIENT

DRUGS (37)
  1. TRASTUZUMAB [Suspect]
     Active Substance: TRASTUZUMAB
     Indication: HER2 positive breast cancer
     Dosage: MOST RECENT DOSE PRIOR TO THE EVENT: 9/MAY/2017, EVERY 3 WEEKS
     Route: 042
     Dates: start: 20170418, end: 20170418
  2. TRASTUZUMAB [Suspect]
     Active Substance: TRASTUZUMAB
     Dosage: 6 MG/KG EVERY 3 WEEKS
     Route: 042
     Dates: start: 20170509, end: 20200803
  3. TRASTUZUMAB [Suspect]
     Active Substance: TRASTUZUMAB
     Dosage: 490 MG, EVERY 3 WEEKS
     Route: 042
     Dates: start: 20221121, end: 20230109
  4. PERTUZUMAB [Suspect]
     Active Substance: PERTUZUMAB
     Indication: HER2 positive breast cancer
     Dosage: MOST RECENT DOSE PRIOR TO THE EVENT: 09/MAY/2017, EVERY 3 WEEKS
     Route: 042
     Dates: start: 20170418, end: 20170418
  5. DOCETAXEL [Suspect]
     Active Substance: DOCETAXEL
     Indication: HER2 positive breast cancer
     Dosage: MOST RECENT DOSE PRIOR TO THE EVENT: 09/MAY/2017, EVERY 3 WEEKS
     Route: 042
     Dates: start: 20170418, end: 20170418
  6. DOCETAXEL [Suspect]
     Active Substance: DOCETAXEL
     Dosage: 75 MG/M2, 3/WEEK
     Route: 042
     Dates: start: 20170509, end: 20170928
  7. LEUPROLIDE ACETATE [Suspect]
     Active Substance: LEUPROLIDE ACETATE
     Indication: HER2 positive breast cancer
     Dosage: 3.75 MG, MONTHLY
     Route: 058
     Dates: start: 20171019
  8. EXEMESTANE [Suspect]
     Active Substance: EXEMESTANE
     Indication: HER2 positive breast cancer
     Dosage: MOST RECENT DOSE ON 03/AUG/2020
     Route: 048
     Dates: start: 20171019
  9. ADO-TRASTUZUMAB EMTANSINE [Suspect]
     Active Substance: ADO-TRASTUZUMAB EMTANSINE
     Indication: HER2 positive breast cancer
     Dosage: MOST RECENT DOSE ON 27/SEP/2021, EVERY 3 WEEKS
     Route: 042
     Dates: start: 20200803
  10. LEVETIRACETAM [Concomitant]
     Active Substance: LEVETIRACETAM
     Dosage: ONGOING = CHECKED
     Dates: start: 20210614
  11. Varcodes [Concomitant]
     Dosage: ONGOING = CHECKED
     Dates: start: 20220921
  12. Varcodes [Concomitant]
     Dosage: ONGOING = CHECKED
     Dates: start: 20220727
  13. FOLIC ACID [Concomitant]
     Active Substance: FOLIC ACID
     Dosage: ONGOING = CHECKED
     Dates: start: 20220622
  14. Tiobec [Concomitant]
     Dosage: ONGOING = CHECKED
     Dates: start: 20220622
  15. KEFIBIOS [Concomitant]
  16. APREPITANT [Concomitant]
     Active Substance: APREPITANT
  17. CYANOCOBALAMIN\PYRIDOXINE\THIAMINE [Concomitant]
     Active Substance: CYANOCOBALAMIN\PYRIDOXINE\THIAMINE
     Dosage: ONGOING = CHECKED
     Dates: start: 20220622
  18. CYANOCOBALAMIN\PYRIDOXINE\THIAMINE [Concomitant]
     Active Substance: CYANOCOBALAMIN\PYRIDOXINE\THIAMINE
     Dosage: UNK
  19. LANSOPRAZOLE [Concomitant]
     Active Substance: LANSOPRAZOLE
     Dosage: ONGOING = CHECKED
     Dates: start: 20201005
  20. ALDACTONE [Concomitant]
     Active Substance: SPIRONOLACTONE
     Dosage: ONGOING = CHECKED
     Dates: start: 20221012
  21. ZOMETA [Concomitant]
     Active Substance: ZOLEDRONIC ACID
  22. CYMBALTA [Concomitant]
     Active Substance: DULOXETINE HYDROCHLORIDE
  23. CYMBALTA [Concomitant]
     Active Substance: DULOXETINE HYDROCHLORIDE
     Dosage: ONGOING = NOT CHECKED
     Dates: start: 20220622, end: 20220811
  24. DEXAMETHASONE [Concomitant]
     Active Substance: DEXAMETHASONE
  25. LEVOSULPIRIDE [Concomitant]
     Active Substance: LEVOSULPIRIDE
  26. OXYCODONE [Concomitant]
     Active Substance: OXYCODONE
     Dosage: UNK
  27. OXYCODONE [Concomitant]
     Active Substance: OXYCODONE
     Dosage: ONGOING = CHECKED
     Dates: start: 20221119
  28. FUROSEMIDE [Concomitant]
     Active Substance: FUROSEMIDE
     Dosage: ONGOING = CHECKED
     Dates: start: 20221012
  29. TOBRADEX [Concomitant]
     Active Substance: DEXAMETHASONE\TOBRAMYCIN
  30. DIETARY SUPPLEMENT\HERBALS\MILK THISTLE [Concomitant]
     Active Substance: DIETARY SUPPLEMENT\HERBALS\MILK THISTLE
     Dosage: UNK
  31. DIETARY SUPPLEMENT\HERBALS\MILK THISTLE [Concomitant]
     Active Substance: DIETARY SUPPLEMENT\HERBALS\MILK THISTLE
     Dosage: ONGOING = NOT CHECKED
     Dates: start: 20220316
  32. AMITRIPTYLINE HYDROCHLORIDE [Concomitant]
     Active Substance: AMITRIPTYLINE HYDROCHLORIDE
  33. NETTACIN [Concomitant]
  34. FILGRASTIM [Concomitant]
     Active Substance: FILGRASTIM
  35. PREDNISONE [Concomitant]
     Active Substance: PREDNISONE
  36. IMIDAZYL [Concomitant]
  37. MOVICOL [Concomitant]
     Active Substance: POLYETHYLENE GLYCOL 3350\POTASSIUM CHLORIDE\SODIUM BICARBONATE\SODIUM CHLORIDE
     Dosage: ONGOING = CHECKED
     Dates: start: 20220413

REACTIONS (2)
  - Deep vein thrombosis [Not Recovered/Not Resolved]
  - Overdose [Unknown]

NARRATIVE: CASE EVENT DATE: 20221111
